FAERS Safety Report 20830197 (Version 1)
Quarter: 2022Q2

REPORT INFORMATION
  Report Type: Spontaneous
  Country: US (occurrence: US)
  Receive Date: 20220514
  Receipt Date: 20220514
  Transmission Date: 20220720
  Serious: No
  Sender: FDA-Public Use
  Company Number: US-BRISTOL-MYERS SQUIBB COMPANY-2022-037659

PATIENT
  Age: 86 Year
  Sex: Male

DRUGS (1)
  1. REVLIMID [Suspect]
     Active Substance: LENALIDOMIDE
     Indication: Rheumatoid arthritis
     Dosage: TAKE 1 CAPSULE BY MOUTH WHOLE WITH WATER  AT THE SAME TIME  DAILY ON 1 -14 DAYS  OF EACH 28 DAY CYCL
     Route: 048
     Dates: start: 20181004

REACTIONS (2)
  - Product prescribing issue [Unknown]
  - Intentional product use issue [Unknown]
